FAERS Safety Report 16723340 (Version 1)
Quarter: 2019Q3

REPORT INFORMATION
  Report Type: Spontaneous
  Country: US (occurrence: US)
  Receive Date: 20190703
  Receipt Date: 20190703
  Transmission Date: 20191005
  Serious: No
  Sender: FDA-Public Use
  Company Number: None

PATIENT
  Age: 28 Year
  Sex: Male

DRUGS (1)
  1. TRUVADA [Suspect]
     Active Substance: EMTRICITABINE\TENOFOVIR DISOPROXIL FUMARATE
     Dosage: ?          OTHER STRENGTH:200-300 MG;?
     Dates: start: 201806

REACTIONS (2)
  - Hepatic enzyme increased [None]
  - Hepatomegaly [None]

NARRATIVE: CASE EVENT DATE: 20180703
